FAERS Safety Report 20825407 (Version 2)
Quarter: 2022Q2

REPORT INFORMATION
  Report Type: Report from Study
  Country: DE (occurrence: DE)
  Receive Date: 20220513
  Receipt Date: 20220629
  Transmission Date: 20220721
  Serious: No
  Sender: FDA-Public Use
  Company Number: DE-CELGENE-DEU-20211104839

PATIENT
  Age: 24 Year
  Sex: Female
  Weight: 56 kg

DRUGS (2)
  1. ZEPOSIA [Suspect]
     Active Substance: OZANIMOD HYDROCHLORIDE
     Indication: Relapsing-remitting multiple sclerosis
     Route: 048
     Dates: start: 20210921
  2. ZEPOSIA [Suspect]
     Active Substance: OZANIMOD HYDROCHLORIDE
     Indication: Multiple sclerosis

REACTIONS (5)
  - Paraesthesia [Recovering/Resolving]
  - Feeling abnormal [Recovering/Resolving]
  - Palpitations [Recovering/Resolving]
  - Lymphopenia [Recovering/Resolving]
  - Incontinence [Recovered/Resolved]

NARRATIVE: CASE EVENT DATE: 20210923
